FAERS Safety Report 16419467 (Version 2)
Quarter: 2019Q3

REPORT INFORMATION
  Report Type: Spontaneous
  Country: FR (occurrence: FR)
  Receive Date: 20190612
  Receipt Date: 20190712
  Transmission Date: 20191004
  Serious: Yes (Hospitalization)
  Sender: FDA-Public Use
  Company Number: FR-ROCHE-2335999

PATIENT
  Age: 86 Year
  Sex: Male

DRUGS (3)
  1. LUCENTIS [Suspect]
     Active Substance: RANIBIZUMAB
     Indication: AGE-RELATED MACULAR DEGENERATION
     Dosage: 1 UNK, ONCE/SINGLE INTO ONE EYE
     Route: 047
     Dates: start: 20190104, end: 20190104
  2. LUCENTIS [Suspect]
     Active Substance: RANIBIZUMAB
     Dosage: 1 DF, ONCE/SINGLE INTO ONE EYE
     Route: 047
     Dates: start: 20190416, end: 20190416
  3. LUCENTIS [Suspect]
     Active Substance: RANIBIZUMAB
     Dosage: 1 DF, ONCE/SINGLE INTO ONE EYE
     Route: 047
     Dates: start: 20190315, end: 20190315

REACTIONS (4)
  - Bladder dilatation [Unknown]
  - Nasopharyngitis [Unknown]
  - Dry eye [Unknown]
  - Fatigue [Recovered/Resolved]

NARRATIVE: CASE EVENT DATE: 20190418
